FAERS Safety Report 5872192-9 (Version None)
Quarter: 2008Q3

REPORT INFORMATION
  Report Type: 
  Country: None (occurrence: None)
  Receive Date: 20080902
  Receipt Date: 20080801
  Transmission Date: 20090109
  Serious: Yes (Other)
  Sender: FDA-Public Use
  Company Number: 2008S1007759

PATIENT
  Age: 59 Year
  Sex: Female

DRUGS (6)
  1. PHOSPHOSODA FLAVOR NOT SPECIFIED(SODIUM PHOSPHATE DIBASIC/SODIUM PHOSP [Suspect]
     Indication: COLONOSCOPY
     Dosage: 45 ML; 169; PO; X1
     Route: 048
     Dates: start: 20080518, end: 20080519
  2. FLECAINIDE ACETATE [Concomitant]
  3. ACEBUTOLOL HYDROCHLORIDE (ACEBUTOLOL HYDROCHLORIDE) [Concomitant]
  4. FLUINDIONE (FLUINDIONE) [Concomitant]
  5. FUROSEMIDE [Concomitant]
  6. RAMIPRIL [Concomitant]

REACTIONS (1)
  - ARRHYTHMIA [None]
